FAERS Safety Report 5472573-1 (Version None)
Quarter: 2007Q4

REPORT INFORMATION
  Report Type: 
  Country: None (occurrence: None)
  Receive Date: 20071001
  Receipt Date: 20070201
  Transmission Date: 20080405
  Serious: No
  Sender: FDA-Public Use
  Company Number: US-ASTRAZENECA-2006UW00289

PATIENT
  Age: 72 Year
  Sex: Female
  Weight: 90.7 kg

DRUGS (8)
  1. ARIMIDEX [Suspect]
     Indication: BREAST CANCER
     Route: 048
  2. CRESTOR [Concomitant]
     Route: 048
  3. TOPROL-XL [Concomitant]
     Route: 048
  4. ALLEGRA [Concomitant]
  5. AVAPRO [Concomitant]
  6. ZETIA [Concomitant]
  7. PAXIL [Concomitant]
  8. ASPIRIN [Concomitant]

REACTIONS (2)
  - RASH MACULO-PAPULAR [None]
  - TREMOR [None]
